FAERS Safety Report 9496116 (Version 2)
Quarter: 2014Q1

REPORT INFORMATION
  Report Type: Report from Study
  Country: GR (occurrence: GR)
  Receive Date: 20130904
  Receipt Date: 20140129
  Transmission Date: 20141002
  Serious: Yes (Hospitalization)
  Sender: FDA-Public Use
  Company Number: GR-ROCHE-1267603

PATIENT
  Age: 71 Year
  Sex: Female
  Weight: 57.07 kg

DRUGS (8)
  1. BEVACIZUMAB [Suspect]
     Indication: RENAL CANCER METASTATIC
     Route: 065
     Dates: start: 20120430, end: 20130603
  2. TEMSIROLIMUS [Suspect]
     Indication: RENAL CANCER METASTATIC
     Route: 042
     Dates: start: 20120430, end: 20130617
  3. ZOFRAN [Concomitant]
     Route: 042
     Dates: start: 20120430, end: 20120617
  4. ZANTAC [Concomitant]
     Route: 042
     Dates: end: 20130617
  5. FENISTIL (GREECE) [Concomitant]
     Route: 042
     Dates: end: 20130617
  6. DEXAMETHASONE [Concomitant]
     Route: 042
     Dates: end: 20130617
  7. CONTROLOC (GREECE) [Concomitant]
     Indication: PROPHYLAXIS
     Route: 048
  8. DILATREND [Concomitant]
     Indication: HYPERTENSION
     Route: 048
     Dates: start: 20130527

REACTIONS (1)
  - Colitis [Recovered/Resolved]
